FAERS Safety Report 22806128 (Version 3)
Quarter: 2024Q3

REPORT INFORMATION
  Report Type: Report from Study
  Country: CA (occurrence: CA)
  Receive Date: 20230809
  Receipt Date: 20240808
  Transmission Date: 20241016
  Serious: Yes (Death, Other)
  Sender: HLS THERAPEUTICS
  Company Number: CA-HLS-202301921

PATIENT
  Age: 35 Year
  Sex: Male

DRUGS (6)
  1. CLOZARIL [Suspect]
     Active Substance: CLOZAPINE
     Indication: Schizophrenia
     Dosage: 300 MG EVERY NIGHT AT BEDTIME
     Route: 048
     Dates: start: 20230427, end: 20230805
  2. DITROPAN [Concomitant]
     Active Substance: OXYBUTYNIN CHLORIDE
     Indication: Enuresis
     Dosage: 2.5 MG EVERY NIGHT AT BEDTIME.
     Route: 048
     Dates: start: 20230802, end: 20230805
  3. PROZAC [Concomitant]
     Active Substance: FLUOXETINE HYDROCHLORIDE
     Indication: Schizophrenia
     Dosage: 40 MG DAILY
     Route: 048
     Dates: start: 202301, end: 20230805
  4. RIVOTRIL [Concomitant]
     Active Substance: CLONAZEPAM
     Indication: Schizophrenia
     Dosage: 0.5 MG BID
     Route: 048
     Dates: start: 20230523, end: 20230805
  5. INVEGA [Concomitant]
     Active Substance: PALIPERIDONE
     Indication: Schizophrenia
     Dosage: 100 MG
     Route: 030
     Dates: start: 202107, end: 20230805
  6. LITHIUM [Concomitant]
     Active Substance: LITHIUM
     Indication: Schizophrenia
     Dosage: 1200MG/DAY, STARTED BEFORE 2019
     Route: 048
     Dates: end: 20230805

REACTIONS (2)
  - Cardiomyopathy [Fatal]
  - Obesity [Fatal]
